FAERS Safety Report 11614653 (Version 1)
Quarter: 2015Q4

REPORT INFORMATION
  Report Type: Spontaneous
  Country: US (occurrence: US)
  Receive Date: 20151009
  Receipt Date: 20151009
  Transmission Date: 20160304
  Serious: No
  Sender: FDA-Public Use
  Company Number: US-009507513-1510USA004445

PATIENT
  Age: 52 Year
  Sex: Male

DRUGS (3)
  1. BELSOMRA [Suspect]
     Active Substance: SUVOREXANT
     Indication: INSOMNIA
     Dosage: ONE TABLET BEDTIME (INCREASED DOSAGE FROM 15 MG TO 20 MG  ON UNSPECIFIED DATE)
     Route: 048
     Dates: start: 201508
  2. CLONAZEPAM. [Concomitant]
     Active Substance: CLONAZEPAM
  3. CLONIDINE. [Concomitant]
     Active Substance: CLONIDINE

REACTIONS (3)
  - Abdominal pain upper [Unknown]
  - Hyperchlorhydria [Unknown]
  - Eructation [Unknown]

NARRATIVE: CASE EVENT DATE: 20151006
